FAERS Safety Report 6062316-5 (Version None)
Quarter: 2009Q1

REPORT INFORMATION
  Report Type: 
  Country: None (occurrence: None)
  Receive Date: 20090203
  Receipt Date: 20090126
  Transmission Date: 20090719
  Serious: Yes (Other)
  Sender: FDA-Public Use
  Company Number: PHHY2008NL21653

PATIENT
  Sex: Female

DRUGS (2)
  1. EXELON [Suspect]
     Route: 062
  2. EXELON [Suspect]
     Dosage: 9.5 MG
     Route: 062

REACTIONS (1)
  - TRIGEMINAL NEURALGIA [None]
